FAERS Safety Report 7787643-2 (Version None)
Quarter: 2011Q3

REPORT INFORMATION
  Report Type: 
  Country: None (occurrence: None)
  Receive Date: 20110929
  Receipt Date: 20110920
  Transmission Date: 20111222
  Serious: Yes (Hospitalization, Other)
  Sender: FDA-Public Use
  Company Number: US-US-EMD SERONO, INC.-233156J10USA

PATIENT
  Sex: Male

DRUGS (1)
  1. REBIF [Suspect]
     Indication: MULTIPLE SCLEROSIS
     Route: 058
     Dates: start: 20100105, end: 20110725

REACTIONS (12)
  - SUICIDAL IDEATION [None]
  - ASTHENIA [None]
  - HYPOAESTHESIA [None]
  - HEADACHE [None]
  - FEELING ABNORMAL [None]
  - CENTRAL NERVOUS SYSTEM LESION [None]
  - TREMOR [None]
  - DEPRESSED MOOD [None]
  - SALIVARY HYPERSECRETION [None]
  - INJECTION SITE PAIN [None]
  - ABASIA [None]
  - MUSCULOSKELETAL STIFFNESS [None]
